FAERS Safety Report 18304888 (Version 4)
Quarter: 2022Q1

REPORT INFORMATION
  Report Type: Spontaneous
  Country: US (occurrence: US)
  Receive Date: 20200923
  Receipt Date: 20220107
  Transmission Date: 20220423
  Serious: Yes (Other)
  Sender: FDA-Public Use
  Company Number: US-PFIZER INC-2020363935

PATIENT
  Age: 18 Year
  Sex: Female
  Weight: 44.2 kg

DRUGS (2)
  1. MORPHINE SULFATE [Suspect]
     Active Substance: MORPHINE SULFATE
     Indication: Oral pain
     Dosage: UNK, AS NEEDED
  2. OXYCODONE [Suspect]
     Active Substance: OXYCODONE
     Indication: Oral pain
     Dosage: UNK, AS NEEDED

REACTIONS (1)
  - Drug ineffective [Not Recovered/Not Resolved]
